FAERS Safety Report 20176528 (Version 1)
Quarter: 2021Q4

REPORT INFORMATION
  Report Type: Spontaneous
  Country: US (occurrence: None)
  Receive Date: 20211210
  Receipt Date: 20211210
  Transmission Date: 20220303
  Serious: Yes (Hospitalization)
  Sender: FDA-Public Use
  Company Number: None

PATIENT
  Age: 38 Year
  Sex: Female

DRUGS (1)
  1. ABILIFY [Suspect]
     Active Substance: ARIPIPRAZOLE
     Indication: Depression
     Dates: start: 20210601, end: 20211130

REACTIONS (6)
  - Muscle spasms [None]
  - Muscle rigidity [None]
  - Gait inability [None]
  - Balance disorder [None]
  - Loss of personal independence in daily activities [None]
  - Walking aid user [None]

NARRATIVE: CASE EVENT DATE: 20211208
